FAERS Safety Report 10079543 (Version 2)
Quarter: 2015Q1

REPORT INFORMATION
  Report Type: Spontaneous
  Country: US (occurrence: US)
  Receive Date: 20140415
  Receipt Date: 20150303
  Transmission Date: 20150720
  Serious: Yes (Hospitalization, Other)
  Sender: FDA-Public Use
  Company Number: US-BAYER-2014-054913

PATIENT
  Age: 36 Year
  Sex: Female
  Weight: 93.88 kg

DRUGS (9)
  1. XANAX [Concomitant]
     Active Substance: ALPRAZOLAM
  2. INSULIN NEUTRAL [Concomitant]
  3. INSULIN REGULAR [Concomitant]
     Active Substance: INSULIN NOS
  4. YAZ [Suspect]
     Active Substance: DROSPIRENONE\ETHINYL ESTRADIOL
     Indication: PREMENSTRUAL DYSPHORIC DISORDER
     Dosage: UNK
     Dates: start: 2009, end: 2011
  5. METOPROLOL [Concomitant]
     Active Substance: METOPROLOL
  6. LEVAQUIN [Concomitant]
     Active Substance: LEVOFLOXACIN
  7. LYRICA [Concomitant]
     Active Substance: PREGABALIN
  8. YASMIN [Suspect]
     Active Substance: DROSPIRENONE\ETHINYL ESTRADIOL
     Indication: PREMENSTRUAL DYSPHORIC DISORDER
     Dosage: UNK
     Dates: start: 2009, end: 2011
  9. GABAPENTIN. [Concomitant]
     Active Substance: GABAPENTIN

REACTIONS (6)
  - Cerebrovascular accident [None]
  - Pulmonary embolism [None]
  - Thrombosis [None]
  - Injury [None]
  - Deep vein thrombosis [None]
  - Pain [None]

NARRATIVE: CASE EVENT DATE: 20090803
